FAERS Safety Report 9284122 (Version 1)
Quarter: 2013Q2

REPORT INFORMATION
  Report Type: Spontaneous
  Country: US (occurrence: US)
  Receive Date: 20130509
  Receipt Date: 20130509
  Transmission Date: 20140414
  Serious: Yes (Life-Threatening, Other)
  Sender: FDA-Public Use
  Company Number: US-RB-053309-13

PATIENT
  Age: 30 Year
  Sex: Male

DRUGS (5)
  1. SUBOXONE UNSPECIFIED [Suspect]
     Indication: DRUG DEPENDENCE
     Dosage: DOSING DETAILS UNKNOWN
     Route: 060
     Dates: start: 201304, end: 201304
  2. HEROIN [Suspect]
     Indication: DRUG DEPENDENCE
     Dosage: DOSING DETAILS UNKNOWN
     Route: 065
  3. CLONIDINE [Suspect]
     Indication: HYPERTENSION
     Dosage: DOSING DETAILS UNKNOWN
     Route: 048
  4. PRILOSEC [Concomitant]
     Indication: GASTROOESOPHAGEAL REFLUX DISEASE
     Dosage: DOSING DETAILS UNKNOWN
     Route: 048
  5. NEURONTIN [Concomitant]
     Indication: MUSCLE TWITCHING
     Dosage: DOSING DETAILS UNKNOWN
     Route: 048

REACTIONS (8)
  - Drug dependence [Not Recovered/Not Resolved]
  - Overdose [Recovered/Resolved]
  - Hot flush [Recovered/Resolved]
  - Muscle spasms [Recovered/Resolved]
  - Pain [Recovered/Resolved]
  - Diarrhoea [Recovered/Resolved]
  - Feeling abnormal [Recovered/Resolved]
  - Cardiac arrest [Recovered/Resolved]
